FAERS Safety Report 19219308 (Version 1)
Quarter: 2021Q2

REPORT INFORMATION
  Report Type: Spontaneous
  Country: US (occurrence: US)
  Receive Date: 20210506
  Receipt Date: 20210506
  Transmission Date: 20210717
  Serious: No
  Sender: FDA-Public Use
  Company Number: US-BRISTOL-MYERS SQUIBB COMPANY-BMS-2021-043881

PATIENT
  Age: 91 Year
  Sex: Female
  Weight: 58.05 kg

DRUGS (1)
  1. ELIQUIS [Suspect]
     Active Substance: APIXABAN
     Indication: EMBOLISM VENOUS
     Dosage: 2.5 MILLIGRAM, BID
     Route: 048
     Dates: start: 2018

REACTIONS (4)
  - Hypoacusis [Unknown]
  - Weight abnormal [Unknown]
  - Visual impairment [Unknown]
  - Body height abnormal [Unknown]
